FAERS Safety Report 6612423-0 (Version None)
Quarter: 2010Q1

REPORT INFORMATION
  Report Type: 
  Country: None (occurrence: None)
  Receive Date: 20100303
  Receipt Date: 20100219
  Transmission Date: 20100710
  Serious: Yes (Hospitalization, Other)
  Sender: FDA-Public Use
  Company Number: PHHY2009JP32652

PATIENT
  Sex: Female
  Weight: 73 kg

DRUGS (8)
  1. LOCHOL [Suspect]
     Indication: DYSLIPIDAEMIA
     Dosage: 20 MG DAILY
     Route: 048
     Dates: start: 20050101, end: 20090730
  2. ANTIHYPERTENSIVES [Concomitant]
  3. RENIVACE [Concomitant]
     Route: 048
  4. CALBLOCK [Concomitant]
     Route: 048
  5. ARTIST [Concomitant]
     Route: 048
  6. DAONIL [Concomitant]
     Route: 048
  7. ALDOMET [Concomitant]
     Route: 048
  8. METFORMIN HCL [Concomitant]
     Route: 048

REACTIONS (11)
  - BACTERIURIA [None]
  - BLOOD CREATINE PHOSPHOKINASE INCREASED [None]
  - DEHYDRATION [None]
  - DYSSTASIA [None]
  - ESCHERICHIA INFECTION [None]
  - INFLAMMATION [None]
  - MUSCULAR WEAKNESS [None]
  - PAIN [None]
  - RENAL IMPAIRMENT [None]
  - RHABDOMYOLYSIS [None]
  - UROSEPSIS [None]
